FAERS Safety Report 9721434 (Version 6)
Quarter: 2014Q2

REPORT INFORMATION
  Report Type: Spontaneous
  Country: US (occurrence: US)
  Receive Date: 20131129
  Receipt Date: 20140409
  Transmission Date: 20141212
  Serious: No
  Sender: FDA-Public Use
  Company Number: US-009507513-1311USA012518

PATIENT
  Age: 23 Year
  Sex: Female
  Weight: 78.46 kg

DRUGS (1)
  1. IMPLANON [Suspect]
     Dosage: UNK
     Route: 059
     Dates: start: 20110124

REACTIONS (6)
  - Device difficult to use [Recovered/Resolved]
  - Medical device complication [Not Recovered/Not Resolved]
  - Menstruation irregular [Unknown]
  - Menorrhagia [Unknown]
  - Headache [Unknown]
  - Device difficult to use [Not Recovered/Not Resolved]
